FAERS Safety Report 7864903-8 (Version None)
Quarter: 2011Q4

REPORT INFORMATION
  Report Type: 
  Country: None (occurrence: None)
  Receive Date: 20111028
  Receipt Date: 20100915
  Transmission Date: 20120403
  Serious: No
  Sender: FDA-Public Use
  Company Number: US-GLAXOSMITHKLINE-A0881307A

PATIENT
  Age: 49 Year
  Sex: Female

DRUGS (4)
  1. PRILOSEC [Concomitant]
  2. ADVAIR DISKUS 100/50 [Suspect]
     Indication: CHRONIC OBSTRUCTIVE PULMONARY DISEASE
     Dosage: 1PUFF TWICE PER DAY
     Route: 055
     Dates: start: 20100903, end: 20100909
  3. ZYRTEC [Concomitant]
  4. SPIRIVA [Concomitant]

REACTIONS (7)
  - THROAT IRRITATION [None]
  - IRRITABILITY [None]
  - DYSPHONIA [None]
  - NAUSEA [None]
  - CHILLS [None]
  - SWELLING [None]
  - OEDEMA PERIPHERAL [None]
